FAERS Safety Report 6160586-6 (Version None)
Quarter: 2009Q2

REPORT INFORMATION
  Report Type: 
  Country: None (occurrence: None)
  Receive Date: 20090416
  Receipt Date: 20090402
  Transmission Date: 20091009
  Serious: Yes (Other)
  Sender: FDA-Public Use
  Company Number: 1000005706

PATIENT
  Sex: Female

DRUGS (2)
  1. ESCITALOPRAM [Suspect]
     Dosage: ORAL
     Route: 048
  2. ANAUSIN [Suspect]
     Dosage: (15 MG)

REACTIONS (6)
  - AMIMIA [None]
  - DYSKINESIA [None]
  - EXTRAPYRAMIDAL DISORDER [None]
  - EYELID FUNCTION DISORDER [None]
  - MUSCULAR WEAKNESS [None]
  - PARKINSONISM [None]
